FAERS Safety Report 15893283 (Version 1)
Quarter: 2019Q1

REPORT INFORMATION
  Report Type: Report from Study
  Country: US (occurrence: US)
  Receive Date: 20190130
  Receipt Date: 20190130
  Transmission Date: 20190417
  Serious: No
  Sender: FDA-Public Use
  Company Number: US-EXELIXIS-CABO-18015749

PATIENT
  Age: 63 Year
  Sex: Female

DRUGS (7)
  1. LEVOTHYROXINE. [Concomitant]
     Active Substance: LEVOTHYROXINE
  2. METFORMIN [Concomitant]
     Active Substance: METFORMIN HYDROCHLORIDE
  3. LOSARTAN. [Concomitant]
     Active Substance: LOSARTAN
  4. COMETRIQ [Suspect]
     Active Substance: CABOZANTINIB S-MALATE
     Indication: THYROID CANCER
     Dosage: 60 MG, QD
     Route: 048
  5. COMETRIQ [Suspect]
     Active Substance: CABOZANTINIB S-MALATE
     Dosage: 40 MG, QD
     Route: 048
     Dates: start: 20180816, end: 201808
  6. LIOTHYRONINE [Concomitant]
     Active Substance: LIOTHYRONINE
  7. MORPHINE [Concomitant]
     Active Substance: MORPHINE

REACTIONS (3)
  - Chest pain [Unknown]
  - Dyspnoea [Unknown]
  - Eating disorder [Unknown]

NARRATIVE: CASE EVENT DATE: 201808
